FAERS Safety Report 6294502-3 (Version None)
Quarter: 2009Q3

REPORT INFORMATION
  Report Type: 
  Country: None (occurrence: None)
  Receive Date: 20090803
  Receipt Date: 20090722
  Transmission Date: 20100115
  Serious: Yes (Life-Threatening, Hospitalization)
  Sender: FDA-Public Use
  Company Number: DE-PFIZER INC-2007077985

PATIENT
  Age: 41 Year

DRUGS (16)
  1. SUNITINIB MALATE [Suspect]
     Indication: BREAST CANCER METASTATIC
     Dosage: 37.5 MG, 1X/DAY
     Route: 048
     Dates: start: 20070727, end: 20070913
  2. *CAPECITABINE [Suspect]
     Indication: BREAST CANCER METASTATIC
     Dosage: 2500 MG, 2X/DAY
     Route: 048
     Dates: start: 20070727, end: 20070809
  3. *CAPECITABINE [Suspect]
     Dosage: 2500MG/DAY
     Route: 048
     Dates: start: 20070925, end: 20071009
  4. *CAPECITABINE [Suspect]
     Dosage: 2500MG/DAY
     Route: 048
     Dates: start: 20071017, end: 20071030
  5. VITAMIN B6 [Concomitant]
     Route: 048
     Dates: start: 20070727
  6. LOPERAMIDE HYDROCHLORIDE [Concomitant]
     Dosage: MAX 12MG DAILY
     Route: 048
     Dates: start: 20070727
  7. PASPERTIN [Concomitant]
     Dosage: MAX 3 X 30 DROPS,AS NECESSARY
     Route: 048
     Dates: start: 20070727
  8. TEGRETOL [Concomitant]
     Dosage: AS NECESSARY
     Route: 048
     Dates: start: 19820101
  9. LYRICA [Concomitant]
     Route: 048
     Dates: start: 20070401
  10. ARCOXIA [Concomitant]
     Route: 048
     Dates: start: 20070401
  11. PANTOZOL [Concomitant]
     Route: 048
     Dates: start: 20070401
  12. L-THYROXIN [Concomitant]
     Route: 048
     Dates: start: 19840101
  13. DEXAMETHASONE [Concomitant]
     Route: 048
     Dates: start: 20070401
  14. LAMOTRIGINE [Concomitant]
     Route: 048
     Dates: start: 20040101
  15. KEPPRA [Concomitant]
     Route: 048
     Dates: start: 20070701
  16. ENOXAPARIN SODIUM [Concomitant]
     Route: 030
     Dates: start: 20070401, end: 20070911

REACTIONS (2)
  - ERYSIPELAS [None]
  - PELVIC VENOUS THROMBOSIS [None]
